FAERS Safety Report 16777949 (Version 3)
Quarter: 2019Q4

REPORT INFORMATION
  Report Type: Spontaneous
  Country: DE (occurrence: DE)
  Receive Date: 20190905
  Receipt Date: 20191204
  Transmission Date: 20200122
  Serious: Yes (Hospitalization, Other)
  Sender: FDA-Public Use
  Company Number: DE-GILEAD-2019-0426555

PATIENT
  Sex: Female

DRUGS (1)
  1. ZYDELIG [Suspect]
     Active Substance: IDELALISIB
     Indication: PRODUCT USED FOR UNKNOWN INDICATION
     Dosage: 100 MG, QD
     Route: 065

REACTIONS (12)
  - Disorientation [Unknown]
  - Dementia [Unknown]
  - Pain [Unknown]
  - Blindness [Unknown]
  - Nausea [Not Recovered/Not Resolved]
  - Off label use [Recovered/Resolved]
  - General physical health deterioration [Not Recovered/Not Resolved]
  - Genital tract inflammation [Unknown]
  - Dizziness [Unknown]
  - Polyneuropathy [Unknown]
  - Abdominal pain [Unknown]
  - Diarrhoea [Unknown]
